FAERS Safety Report 8618821-8 (Version None)
Quarter: 2012Q3

REPORT INFORMATION
  Report Type: 
  Country: None (occurrence: None)
  Receive Date: 20120824
  Receipt Date: 20120816
  Transmission Date: 20120928
  Serious: No
  Sender: FDA-Public Use
  Company Number: US-009507513-1208USA008490

PATIENT

DRUGS (4)
  1. SAPHRIS [Suspect]
     Indication: BIPOLAR I DISORDER
     Dosage: 5 MG, QD, AT BEDTIME
     Route: 060
     Dates: start: 20120216
  2. CELEXA [Concomitant]
  3. DEPAKOTE [Concomitant]
  4. AMBIEN [Concomitant]

REACTIONS (3)
  - INCREASED APPETITE [None]
  - UNDERDOSE [None]
  - AKATHISIA [None]
